FAERS Safety Report 14253876 (Version 2)
Quarter: 2017Q4

REPORT INFORMATION
  Report Type: Spontaneous
  Country: US (occurrence: US)
  Receive Date: 20171205
  Receipt Date: 20171227
  Transmission Date: 20180321
  Serious: Yes (Death)
  Sender: FDA-Public Use
  Company Number: US-PFIZER INC-2017519927

PATIENT
  Age: 79 Year
  Sex: Female
  Weight: 43 kg

DRUGS (4)
  1. ZYVOX [Suspect]
     Active Substance: LINEZOLID
     Indication: ABSCESS
  2. ZYVOX [Suspect]
     Active Substance: LINEZOLID
     Indication: INFECTION
     Dosage: UNK
     Route: 042
     Dates: start: 2017
  3. ZYVOX [Suspect]
     Active Substance: LINEZOLID
     Indication: ABSCESS
  4. ZYVOX [Suspect]
     Active Substance: LINEZOLID
     Indication: INFECTION
     Dosage: 100 MG, 2X/DAY
     Route: 048
     Dates: start: 201710

REACTIONS (2)
  - Peritonitis [Fatal]
  - Condition aggravated [Fatal]
